FAERS Safety Report 19239498 (Version 7)
Quarter: 2021Q2

REPORT INFORMATION
  Report Type: Report from Study
  Country: NL (occurrence: NL)
  Receive Date: 20210511
  Receipt Date: 20210628
  Transmission Date: 20210717
  Serious: Yes (Life-Threatening, Hospitalization, Other)
  Sender: FDA-Public Use
  Company Number: NL-BEH-2021131585

PATIENT
  Age: 62 Year
  Sex: Male
  Weight: 79 kg

DRUGS (17)
  1. PRIVIGEN [Suspect]
     Active Substance: HUMAN IMMUNOGLOBULIN G
     Dosage: 32 GRAM, QD
     Route: 042
     Dates: start: 20210410, end: 20210410
  2. PRIVIGEN [Suspect]
     Active Substance: HUMAN IMMUNOGLOBULIN G
     Dosage: 32 GRAM, QD
     Route: 042
     Dates: start: 20210428, end: 20210428
  3. PRIVIGEN [Suspect]
     Active Substance: HUMAN IMMUNOGLOBULIN G
     Indication: ENCEPHALITIS AUTOIMMUNE
     Dosage: 32 GRAM, QD
     Route: 042
     Dates: start: 20210408, end: 20210408
  4. PRIVIGEN [Suspect]
     Active Substance: HUMAN IMMUNOGLOBULIN G
     Dosage: 32 GRAM, QD
     Route: 042
     Dates: start: 20210429, end: 20210429
  5. INSULIN [Concomitant]
     Active Substance: INSULIN NOS
     Indication: TYPE 1 DIABETES MELLITUS
     Dosage: VARIABLE
     Route: 058
  6. OMEGA 3 [FISH OIL] [Concomitant]
     Active Substance: FISH OIL
  7. MAGNESIUM CITRATE. [Concomitant]
     Active Substance: MAGNESIUM CITRATE
  8. GLUCOSAMINE [Concomitant]
     Active Substance: GLUCOSAMINE
  9. CHOLECALCIFEROL [Concomitant]
     Active Substance: CHOLECALCIFEROL
  10. PRIVIGEN [Suspect]
     Active Substance: HUMAN IMMUNOGLOBULIN G
     Dosage: 32 GRAM, QD
     Route: 042
     Dates: start: 20210411, end: 20210411
  11. ASCORBIC ACID. [Concomitant]
     Active Substance: ASCORBIC ACID
  12. PRIVIGEN [Suspect]
     Active Substance: HUMAN IMMUNOGLOBULIN G
     Indication: EPILEPSY
     Dosage: 32 GRAM, QD
     Route: 042
     Dates: start: 20210407, end: 20210407
  13. PRIVIGEN [Suspect]
     Active Substance: HUMAN IMMUNOGLOBULIN G
     Dosage: 32 GRAM, QD
     Route: 042
     Dates: start: 20210427, end: 20210427
  14. PRIVIGEN [Suspect]
     Active Substance: HUMAN IMMUNOGLOBULIN G
     Dosage: 32 GRAM, QD
     Route: 042
     Dates: start: 20210409, end: 20210409
  15. PRIVIGEN [Suspect]
     Active Substance: HUMAN IMMUNOGLOBULIN G
     Dosage: 32 GRAM, QD
     Route: 042
     Dates: start: 20210426, end: 20210426
  16. PRIVIGEN [Suspect]
     Active Substance: HUMAN IMMUNOGLOBULIN G
     Dosage: 32 GRAM, QD
     Route: 042
     Dates: start: 20210430, end: 20210430
  17. INSULIN ASPART [Concomitant]
     Active Substance: INSULIN ASPART

REACTIONS (11)
  - No adverse event [Unknown]
  - Transfusion-related acute lung injury [Recovered/Resolved]
  - Aspartate aminotransferase increased [Recovered/Resolved]
  - Pulmonary oedema [Recovered/Resolved]
  - Hypoxia [Recovered/Resolved]
  - Blood immunoglobulin G increased [Recovered/Resolved]
  - Acute respiratory failure [Recovered/Resolved]
  - Off label use [Unknown]
  - Anaemia [Unknown]
  - White blood cell count decreased [Unknown]
  - Seizure [Recovered/Resolved]

NARRATIVE: CASE EVENT DATE: 20210411
